FAERS Safety Report 6708834-5 (Version None)
Quarter: 2010Q2

REPORT INFORMATION
  Report Type: 
  Country: None (occurrence: None)
  Receive Date: 20100503
  Receipt Date: 20100503
  Transmission Date: 20101027
  Serious: Yes (Hospitalization, Other)
  Sender: FDA-Public Use
  Company Number: None

PATIENT
  Age: 77 Year
  Sex: Male
  Weight: 76.6579 kg

DRUGS (4)
  1. TYLENOL (CAPLET) [Suspect]
     Indication: PAIN
     Dosage: FREQUENT MOUTH
     Route: 048
     Dates: start: 20090101, end: 20100101
  2. BENADRYL [Suspect]
     Indication: HYPERSENSITIVITY
     Dosage: FREQUENT MOUTH
     Route: 048
     Dates: start: 20090101, end: 20100101
  3. ROLAIDS [Suspect]
     Dosage: ONE TIME MOUTH
     Route: 048
  4. ASPIRIN [Suspect]
     Dosage: DAILY MOUTH
     Route: 048

REACTIONS (2)
  - ABDOMINAL PAIN UPPER [None]
  - CHEST PAIN [None]
